FAERS Safety Report 6748731-2 (Version None)
Quarter: 2010Q2

REPORT INFORMATION
  Report Type: 
  Country: None (occurrence: None)
  Receive Date: 20100601
  Receipt Date: 20100518
  Transmission Date: 20101027
  Serious: Yes (Other)
  Sender: FDA-Public Use
  Company Number: PHHY2010JP25547

PATIENT
  Age: 85 Year
  Sex: Female

DRUGS (3)
  1. DIOVAN [Suspect]
     Indication: HYPERTENSION
     Dosage: UNK
     Route: 048
     Dates: start: 20100320, end: 20100402
  2. DIOVAN [Suspect]
     Dosage: UNK
     Route: 048
     Dates: start: 20100409
  3. CONIEL [Suspect]
     Dosage: UNK
     Route: 048
     Dates: start: 20100320, end: 20100402

REACTIONS (2)
  - EOSINOPHIL COUNT INCREASED [None]
  - SURGERY [None]
